FAERS Safety Report 10047686 (Version 1)
Quarter: 2014Q1

REPORT INFORMATION
  Report Type: Report from Study
  Country: FR (occurrence: FR)
  Receive Date: 20140331
  Receipt Date: 20140331
  Transmission Date: 20141002
  Serious: Yes (Other)
  Sender: FDA-Public Use
  Company Number: FR-UCBSA-115972

PATIENT
  Age: 59 Year
  Sex: Female
  Weight: 65 kg

DRUGS (9)
  1. CIMZIA [Suspect]
     Indication: RHEUMATOID ARTHRITIS
     Route: 058
     Dates: start: 20120524
  2. CIMZIA [Suspect]
     Indication: RHEUMATOID ARTHRITIS
     Route: 058
     Dates: start: 20120412, end: 20120510
  3. METHOTREXATE [Concomitant]
     Indication: RHEUMATOID ARTHRITIS
     Route: 048
     Dates: start: 199411
  4. CARTEX [Concomitant]
     Indication: RHEUMATOID ARTHRITIS
     Route: 048
     Dates: start: 20120305
  5. SPECIAFOLDINE [Concomitant]
     Indication: VITAMIN SUPPLEMENTATION
     Route: 048
     Dates: start: 199411
  6. EUPANTOL [Concomitant]
     Indication: PROPHYLAXIS AGAINST GASTROINTESTINAL ULCER
     Route: 048
     Dates: start: 20120305
  7. EFFERALGAN [Concomitant]
     Indication: RHEUMATOID ARTHRITIS
     Route: 048
  8. OESCLIM [Concomitant]
     Indication: HORMONE LEVEL ABNORMAL
     Route: 048
     Dates: start: 20130307
  9. DUPHASTON [Concomitant]
     Indication: HORMONE LEVEL ABNORMAL
     Route: 048
     Dates: start: 20130307

REACTIONS (1)
  - Basal cell carcinoma [Recovered/Resolved]
